FAERS Safety Report 16714853 (Version 1)
Quarter: 2019Q3

REPORT INFORMATION
  Report Type: Spontaneous
  Country: SG (occurrence: SG)
  Receive Date: 20190819
  Receipt Date: 20190819
  Transmission Date: 20191005
  Serious: Yes (Hospitalization, Other)
  Sender: FDA-Public Use
  Company Number: SG-JNJFOC-20170513046

PATIENT
  Age: 88 Year
  Sex: Female

DRUGS (1)
  1. RIVAROXABAN [Suspect]
     Active Substance: RIVAROXABAN
     Indication: ATRIAL FIBRILLATION
     Route: 048

REACTIONS (5)
  - Rebound effect [Unknown]
  - Fall [Recovered/Resolved]
  - Hypercoagulation [Unknown]
  - Deep vein thrombosis [Recovered/Resolved]
  - Subdural haematoma [Recovered/Resolved]
